FAERS Safety Report 20477809 (Version 2)
Quarter: 2022Q1

REPORT INFORMATION
  Report Type: Report from Study
  Country: CA (occurrence: CA)
  Receive Date: 20220216
  Receipt Date: 20220310
  Transmission Date: 20220423
  Serious: Yes (Other)
  Sender: FDA-Public Use
  Company Number: CA-JNJFOC-20210841513

PATIENT
  Age: 58 Year
  Sex: Male
  Weight: 73.48 kg

DRUGS (4)
  1. STELARA [Suspect]
     Active Substance: USTEKINUMAB
     Indication: Crohn^s disease
     Route: 058
     Dates: start: 20170830, end: 201807
  2. STELARA [Suspect]
     Active Substance: USTEKINUMAB
     Dosage: DRUG HOLIDAY WITH RE-INDUCTION OR MAINTENANCE OTHER THAN Q8W OR Q12W:UNAPPROVED DOSING REGIMEN/OFF-L
     Route: 042
  3. STELARA [Suspect]
     Active Substance: USTEKINUMAB
     Route: 058
  4. STELARA [Suspect]
     Active Substance: USTEKINUMAB
     Route: 058

REACTIONS (5)
  - Crohn^s disease [Unknown]
  - Ileostomy [Unknown]
  - Intestinal resection [Unknown]
  - Ileal ulcer [Unknown]
  - Obstruction [Unknown]

NARRATIVE: CASE EVENT DATE: 20180101
